FAERS Safety Report 12156281 (Version 1)
Quarter: 2016Q1

REPORT INFORMATION
  Report Type: Spontaneous
  Country: US (occurrence: US)
  Receive Date: 20160307
  Receipt Date: 20160307
  Transmission Date: 20160526
  Serious: No
  Sender: FDA-Public Use
  Company Number: PHEH2016US004946

PATIENT
  Sex: Female

DRUGS (1)
  1. AFINITOR [Suspect]
     Active Substance: EVEROLIMUS
     Indication: OVARIAN CANCER
     Dosage: 10 MG, QD
     Route: 048

REACTIONS (4)
  - Product use issue [Unknown]
  - Stomatitis [Not Recovered/Not Resolved]
  - Mouth ulceration [Unknown]
  - Skin lesion [Not Recovered/Not Resolved]
